FAERS Safety Report 23935461 (Version 1)
Quarter: 2024Q2

REPORT INFORMATION
  Report Type: Spontaneous
  Country: DE (occurrence: DE)
  Receive Date: 20240604
  Receipt Date: 20240604
  Transmission Date: 20240716
  Serious: Yes (Life-Threatening, Hospitalization, Other)
  Sender: FDA-Public Use
  Company Number: DE-CPL-004237

PATIENT
  Age: 18 Year
  Sex: Female
  Weight: 55 kg

DRUGS (1)
  1. VENLAFAXINE [Suspect]
     Active Substance: VENLAFAXINE HYDROCHLORIDE
     Dosage: 100 TABLETS-225 MG (TOTAL DOSE:22.5 G) UP TO 3 HRS. PREVIOUSLY WITH SUICIDAL INTENT.

REACTIONS (6)
  - Cardiac arrest [Unknown]
  - Multiple organ dysfunction syndrome [Unknown]
  - Suicide attempt [Unknown]
  - Intentional overdose [Unknown]
  - Seizure [Unknown]
  - Hypoglycaemia [Unknown]
